FAERS Safety Report 8388327-2 (Version None)
Quarter: 2012Q2

REPORT INFORMATION
  Report Type: 
  Country: None (occurrence: None)
  Receive Date: 20120525
  Receipt Date: 20120514
  Transmission Date: 20120825
  Serious: Yes (Disabling)
  Sender: FDA-Public Use
  Company Number: GB-TEVA-338131ISR

PATIENT
  Age: 52 Year
  Sex: Female

DRUGS (4)
  1. LITHIUM CARBONATE [Concomitant]
  2. CITALOPRAM HYDROBROMIDE [Suspect]
     Dosage: OVER THE PERIOD RANGING FROM 20 MG TO 60 MG, LATTERLY 20MG.
     Route: 048
  3. QUETIAPINE [Concomitant]
  4. CITALOPRAM HYDROBROMIDE [Suspect]
     Indication: BIPOLAR I DISORDER
     Dosage: OVER THE PERIOD RANGING FROM 20 MG TO 60 MG, LATTERLY 20MG.
     Route: 048
     Dates: end: 20111101

REACTIONS (1)
  - DEAFNESS NEUROSENSORY [None]
